FAERS Safety Report 7657160-9 (Version None)
Quarter: 2011Q3

REPORT INFORMATION
  Report Type: 
  Country: None (occurrence: None)
  Receive Date: 20110804
  Receipt Date: 20100531
  Transmission Date: 20111222
  Serious: Yes (Death, Hospitalization)
  Sender: FDA-Public Use
  Company Number: PHHY2010DE92347

PATIENT
  Sex: Female

DRUGS (5)
  1. RED BLOOD CELLS [Concomitant]
     Dosage: UNK UKN, UNK
  2. VALPROIC ACID [Concomitant]
     Dosage: UNK UKN, UNK
     Dates: start: 20070801
  3. EPO [Concomitant]
     Dosage: UNK UKN, UNK
     Dates: start: 20070601, end: 20070801
  4. EXJADE [Suspect]
     Indication: MYELODYSPLASTIC SYNDROME
     Dosage: UNK UKN, UNK
     Dates: start: 20071201
  5. THROMBOCTE CONCENTRATES [Concomitant]
     Dosage: UNK UKN, UNK

REACTIONS (3)
  - NEOPLASM MALIGNANT [None]
  - NEOPLASM PROGRESSION [None]
  - CARDIAC ARREST [None]
